FAERS Safety Report 19349535 (Version 3)
Quarter: 2021Q4

REPORT INFORMATION
  Report Type: Report from Study
  Country: GB (occurrence: GB)
  Receive Date: 20210531
  Receipt Date: 20211008
  Transmission Date: 20220303
  Serious: Yes (Hospitalization, Other)
  Sender: FDA-Public Use
  Company Number: GB-ROCHE-2770048

PATIENT

DRUGS (83)
  1. DEXAMETHASONE [Suspect]
     Active Substance: DEXAMETHASONE
     Dosage: 8 MG, QD
     Route: 065
     Dates: start: 20201103, end: 20201103
  2. DEXAMETHASONE [Suspect]
     Active Substance: DEXAMETHASONE
     Dosage: 8 MG, QD
     Route: 065
     Dates: start: 20201124, end: 20201124
  3. DEXAMETHASONE [Suspect]
     Active Substance: DEXAMETHASONE
     Dosage: UNK, QD
     Route: 065
     Dates: start: 20201125, end: 20201127
  4. DEXAMETHASONE [Suspect]
     Active Substance: DEXAMETHASONE
     Dosage: UNK, QD
     Route: 065
     Dates: start: 20201215, end: 20201215
  5. DEXAMETHASONE [Suspect]
     Active Substance: DEXAMETHASONE
     Dosage: (DAILY) QD
     Route: 065
     Dates: start: 20201216, end: 20201218
  6. DEXAMETHASONE [Suspect]
     Active Substance: DEXAMETHASONE
     Dosage: (DAILY) QD
     Route: 065
     Dates: start: 20210119, end: 20210120
  7. DEXAMETHASONE [Suspect]
     Active Substance: DEXAMETHASONE
     Dosage: 8 MG, QD
     Route: 065
     Dates: start: 20210310, end: 20210310
  8. DEXAMETHASONE [Suspect]
     Active Substance: DEXAMETHASONE
     Dosage: UNK
  9. PREDNISOLONE [Suspect]
     Active Substance: PREDNISOLONE
     Indication: Product used for unknown indication
     Dosage: (DAILY) QD
     Route: 065
     Dates: start: 20210108, end: 20210121
  10. PREDNISOLONE [Suspect]
     Active Substance: PREDNISOLONE
     Dosage: UNK UNK, QD
     Route: 065
     Dates: start: 20210121, end: 20210125
  11. PREDNISOLONE [Suspect]
     Active Substance: PREDNISOLONE
     Dosage: UNK UNK, QD
     Route: 065
     Dates: start: 20210108, end: 20210125
  12. ACYCLOVIR [Suspect]
     Active Substance: ACYCLOVIR
     Dosage: UNK
     Dates: start: 20210105, end: 20210126
  13. ATEZOLIZUMAB [Suspect]
     Active Substance: ATEZOLIZUMAB
     Indication: Small cell lung cancer extensive stage
     Dosage: 1200 MG, Q3WEEKS
     Route: 042
     Dates: start: 20201103, end: 20201215
  14. ATEZOLIZUMAB [Suspect]
     Active Substance: ATEZOLIZUMAB
     Dosage: 1200 MG, Q3WEEKS
     Route: 042
     Dates: start: 20201124
  15. ATEZOLIZUMAB [Suspect]
     Active Substance: ATEZOLIZUMAB
     Dosage: 1200 MG, Q3WEEKS
     Route: 042
     Dates: start: 20201215
  16. CARBOPLATIN [Suspect]
     Active Substance: CARBOPLATIN
     Indication: Small cell lung cancer extensive stage
     Dosage: 450 MG
     Route: 065
     Dates: start: 20201124
  17. ETOPOSIDE [Suspect]
     Active Substance: ETOPOSIDE
     Indication: Small cell lung cancer extensive stage
     Dosage: 200 MG
     Route: 065
     Dates: start: 20201124
  18. ETOPOSIDE [Suspect]
     Active Substance: ETOPOSIDE
     Dosage: 800 MG
     Route: 048
     Dates: start: 20201125, end: 20201126
  19. ETOPOSIDE [Suspect]
     Active Substance: ETOPOSIDE
     Dosage: 600 MG
     Route: 048
     Dates: start: 20210210, end: 20210210
  20. ETOPOSIDE [Suspect]
     Active Substance: ETOPOSIDE
     Dosage: UNK, BID
     Dates: start: 20201216, end: 20201217
  21. CLOBETASOL PROPIONATE [Suspect]
     Active Substance: CLOBETASOL PROPIONATE
     Dosage: UNK
     Route: 065
     Dates: start: 20210104, end: 20210108
  22. ADCAL [Concomitant]
     Dosage: EVERY 0.5 DAY (2 IN 1 DAY)
     Route: 065
     Dates: start: 20201124
  23. ADCAL [Concomitant]
     Dosage: UNK, BID
     Route: 065
     Dates: start: 20210103, end: 20210124
  24. ADCAL [Concomitant]
     Dosage: UNK, QD
     Dates: start: 20210104, end: 20210108
  25. AMITRIPTYLINE [Concomitant]
     Active Substance: AMITRIPTYLINE
     Dosage: UNK
     Route: 065
     Dates: start: 20210108, end: 20210121
  26. AMITRIPTYLINE [Concomitant]
     Active Substance: AMITRIPTYLINE
     Dosage: UNK, PRN (AS NECESSARY)
     Route: 065
  27. AQUEOUS CREAM [Concomitant]
     Dosage: UNK, BID
     Route: 065
     Dates: start: 20210103
  28. CALCIUM CARBONATE [Concomitant]
     Active Substance: CALCIUM CARBONATE
     Dosage: (DAILY) QD
     Route: 065
     Dates: start: 20210104, end: 20210108
  29. CALCIUM GLUCONATE [Concomitant]
     Active Substance: CALCIUM GLUCONATE
     Dosage: (DAILY) QD
     Route: 065
     Dates: start: 20201226, end: 20201226
  30. CHLORPHENIRAMINE MALEATE [Concomitant]
     Active Substance: CHLORPHENIRAMINE MALEATE
     Indication: Flushing
     Dosage: UNK
  31. CHLORPHENIRAMINE MALEATE [Concomitant]
     Active Substance: CHLORPHENIRAMINE MALEATE
     Indication: Dyspnoea
     Dosage: (DAILY) QD
     Route: 065
     Dates: start: 20201124, end: 20201124
  32. CHLORPHENIRAMINE MALEATE [Concomitant]
     Active Substance: CHLORPHENIRAMINE MALEATE
     Dosage: 10 MG, QD
     Route: 065
     Dates: start: 20201215, end: 20201215
  33. AMOXICILLIN\CLAVULANATE POTASSIUM [Concomitant]
     Active Substance: AMOXICILLIN\CLAVULANATE POTASSIUM
     Dosage: UNK, QD
     Dates: start: 20210107
  34. CYCLIZINE [Concomitant]
     Active Substance: CYCLIZINE
     Indication: Vomiting
     Dosage: UNK, TID
  35. DALTEPARIN [Concomitant]
     Active Substance: DALTEPARIN
     Indication: Prophylaxis
     Dosage: (DAILY) QD
     Route: 065
     Dates: start: 20210119, end: 20210125
  36. DENOSUMAB [Concomitant]
     Active Substance: DENOSUMAB
     Indication: Metastases to bone
     Dosage: 120 MG, MONTHLY
     Route: 065
     Dates: start: 20201124, end: 20201124
  37. DIHYDROCODEINE [Concomitant]
     Active Substance: DIHYDROCODEINE
     Indication: Pain
     Dosage: UNK, PRN (AS NECESSARY)
     Route: 065
  38. DOMPERIDONE [Concomitant]
     Active Substance: DOMPERIDONE
     Indication: Prophylaxis
     Dosage: UNK, PRN
     Route: 065
     Dates: start: 20201103
  39. FILGRASTIM [Concomitant]
     Active Substance: FILGRASTIM
     Indication: Prophylaxis
     Dosage: (DAILY) QD
     Route: 065
     Dates: start: 20201128, end: 20201205
  40. FILGRASTIM [Concomitant]
     Active Substance: FILGRASTIM
     Dosage: (DAILY) QD
     Route: 065
     Dates: start: 20201218, end: 20201226
  41. FILGRASTIM [Concomitant]
     Active Substance: FILGRASTIM
     Dosage: UNK
     Route: 065
     Dates: start: 20201226, end: 20201229
  42. HYDROCORTISONE SODIUM SUCCINATE [Concomitant]
     Active Substance: HYDROCORTISONE SODIUM SUCCINATE
     Indication: Premedication
     Dosage: 100 MG, DAILY
     Route: 065
     Dates: start: 20201124, end: 20201124
  43. LOPERAMIDE [Concomitant]
     Active Substance: LOPERAMIDE
     Indication: Diarrhoea
     Dosage: UNK, PRN
     Route: 065
     Dates: start: 20201103
  44. LOPERAMIDE [Concomitant]
     Active Substance: LOPERAMIDE
     Dosage: UNK
  45. MAGNESIUM SULFATE [Concomitant]
     Active Substance: MAGNESIUM SULFATE
     Indication: Hypomagnesaemia
     Dosage: (DAILY) QD
     Route: 065
     Dates: start: 20210118, end: 20210118
  46. MEROPENEM [Concomitant]
     Active Substance: MEROPENEM
     Dosage: UNK, TID
     Dates: start: 20201226, end: 20210103
  47. MEROPENEM [Concomitant]
     Active Substance: MEROPENEM
     Dosage: UNK, TID
     Route: 065
     Dates: start: 20210103, end: 20210104
  48. MEROPENEM [Concomitant]
     Active Substance: MEROPENEM
     Dosage: UNK, QD
     Dates: start: 20210103, end: 20210104
  49. METHYLPREDNISOLONE [Concomitant]
     Active Substance: METHYLPREDNISOLONE
     Dosage: UNK
     Route: 065
     Dates: start: 20210118, end: 20210118
  50. METHYLPREDNISOLONE [Concomitant]
     Active Substance: METHYLPREDNISOLONE
     Dosage: (DAILY) QD
     Route: 065
     Dates: start: 20210120, end: 20210120
  51. METHYLPREDNISOLONE [Concomitant]
     Active Substance: METHYLPREDNISOLONE
     Dosage: UNK, QD
     Route: 065
     Dates: start: 20210122, end: 20210125
  52. ONDANSETRON [Concomitant]
     Active Substance: ONDANSETRON
     Indication: Prophylaxis
     Dosage: (DAILY) QD
     Route: 065
     Dates: start: 20201124, end: 20201124
  53. ONDANSETRON [Concomitant]
     Active Substance: ONDANSETRON
     Indication: Vomiting
     Dosage: (DAILY) QD
     Route: 065
     Dates: start: 20201227, end: 20210108
  54. ONDANSETRON [Concomitant]
     Active Substance: ONDANSETRON
     Dosage: UNK UNK, QD
     Dates: start: 20201215
  55. ONDANSETRON [Concomitant]
     Active Substance: ONDANSETRON
     Dosage: UNK, EVERY 0.33 DAY
     Route: 065
     Dates: start: 20201222
  56. ONDANSETRON [Concomitant]
     Active Substance: ONDANSETRON
     Dosage: UNK, EVERY 0.33 DAY
     Route: 065
  57. ONDANSETRON [Concomitant]
     Active Substance: ONDANSETRON
     Dosage: UNK
     Route: 065
     Dates: start: 20210118, end: 20210122
  58. OXYGEN [Concomitant]
     Active Substance: OXYGEN
     Indication: Nausea
     Dosage: (DAILY) QD
     Dates: start: 20201124, end: 20201124
  59. OXYGEN [Concomitant]
     Active Substance: OXYGEN
     Indication: Flushing
     Dosage: UNK
  60. OXYGEN [Concomitant]
     Active Substance: OXYGEN
     Dosage: UNK
  61. ACETAMINOPHEN [Concomitant]
     Active Substance: ACETAMINOPHEN
     Indication: Pain
     Dosage: UNK, PRN
     Route: 065
  62. PHOSPHATE SANDOZ EFFERVESCENT [Concomitant]
     Indication: Hypophosphataemia
     Dosage: UNK, TID
     Route: 065
     Dates: start: 20210103, end: 20210108
  63. PHOSPHATE SANDOZ EFFERVESCENT [Concomitant]
     Dosage: UNK, QD (UNK, EVERY 0.33 DAYS)
     Route: 065
     Dates: start: 20210108
  64. PHOSPHATE SANDOZ EFFERVESCENT [Concomitant]
     Dosage: UNK UNK, QD
     Route: 065
     Dates: start: 20210125
  65. PHYTONADIONE [Concomitant]
     Active Substance: PHYTONADIONE
     Dosage: UNK, EVERY 0.5 DAY
  66. PHYTONADIONE [Concomitant]
     Active Substance: PHYTONADIONE
     Dosage: UNK, BID
     Dates: start: 20201226, end: 20201226
  67. POTASSIUM CHLORIDE [Concomitant]
     Active Substance: POTASSIUM CHLORIDE
     Dosage: UNK, EVERY 0.33 DAY
     Route: 065
     Dates: start: 20210104
  68. SIMVASTATIN [Concomitant]
     Active Substance: SIMVASTATIN
     Indication: Hypercholesterolaemia
     Dosage: (DAILY) QD
     Route: 065
  69. SODIUM CHLORIDE [Concomitant]
     Active Substance: SODIUM CHLORIDE
     Indication: Nausea
     Dosage: UNK, QD
     Dates: start: 20201124, end: 20201124
  70. SODIUM CHLORIDE [Concomitant]
     Active Substance: SODIUM CHLORIDE
     Dosage: UNK
  71. VANCOMYCIN [Concomitant]
     Active Substance: VANCOMYCIN
     Dosage: UNK, QID
     Route: 065
     Dates: start: 20210118, end: 20210120
  72. COTRIMOXAZOLE [Concomitant]
     Active Substance: SULFAMETHOXAZOLE\TRIMETHOPRIM
     Dosage: UNK, QD
     Route: 065
     Dates: start: 20210125
  73. CHOLECALCIFEROL [Concomitant]
     Active Substance: CHOLECALCIFEROL
     Dosage: UNK, QD
     Route: 065
     Dates: start: 20210122, end: 20210125
  74. CREON [Concomitant]
     Active Substance: PANCRELIPASE AMYLASE\PANCRELIPASE LIPASE\PANCRELIPASE PROTEASE
     Dosage: UNK, TID
     Route: 065
     Dates: start: 20210120
  75. ETOPOSIDE [Concomitant]
     Active Substance: ETOPOSIDE
     Dosage: UNK, BID
     Route: 065
     Dates: start: 20201125, end: 20201126
  76. ETOPOSIDE [Concomitant]
     Active Substance: ETOPOSIDE
     Dosage: UNK, BID
     Route: 065
     Dates: start: 20201216, end: 20201217
  77. FIDAXOMICIN [Concomitant]
     Active Substance: FIDAXOMICIN
     Dosage: UNK, BID
     Route: 065
     Dates: start: 20210226, end: 20210308
  78. FOLIC ACID [Concomitant]
     Active Substance: FOLIC ACID
     Dosage: UNK, QD
     Route: 065
     Dates: start: 20210123
  79. MAGNESIUM [Concomitant]
     Active Substance: MAGNESIUM
     Dosage: UNK, TID
     Route: 065
     Dates: start: 20210103
  80. OCTENISA [Concomitant]
     Dosage: UNK, QD, WASH LOTION
     Route: 065
     Dates: start: 20210103
  81. OMEPRAZOLE [Concomitant]
     Active Substance: OMEPRAZOLE
     Indication: Prophylaxis
     Dosage: UNK, QD
     Route: 065
     Dates: start: 20210103
  82. NYSTATIN [Concomitant]
     Active Substance: NYSTATIN
     Dosage: UNK
     Dates: start: 20210103, end: 20210107
  83. TRIMOVATE [Concomitant]
     Active Substance: CLOBETASONE BUTYRATE\NYSTATIN\OXYTETRACYCLINE CALCIUM

REACTIONS (22)
  - Enterocolitis [Recovered/Resolved]
  - Thrombocytopenia [Recovered/Resolved]
  - Neutropenic sepsis [Recovered/Resolved]
  - Acute kidney injury [Recovered/Resolved]
  - Acute kidney injury [Not Recovered/Not Resolved]
  - Pancytopenia [Not Recovered/Not Resolved]
  - Alopecia [Not Recovered/Not Resolved]
  - Dyspnoea [Recovered/Resolved]
  - Flushing [Recovered/Resolved]
  - Terminal ileitis [Not Recovered/Not Resolved]
  - Pancreatitis chronic [Not Recovered/Not Resolved]
  - Diarrhoea [Recovered/Resolved]
  - Anaemia [Recovered/Resolved]
  - Flushing [Recovered/Resolved]
  - COVID-19 pneumonia [Not Recovered/Not Resolved]
  - Hypoaesthesia [Not Recovered/Not Resolved]
  - Clostridium difficile infection [Recovered/Resolved]
  - Fatigue [Not Recovered/Not Resolved]
  - Nausea [Recovered/Resolved]
  - Dizziness [Not Recovered/Not Resolved]
  - Vomiting [Recovered/Resolved]
  - Hypokalaemia [Recovered/Resolved]

NARRATIVE: CASE EVENT DATE: 20201120
